FAERS Safety Report 9429237 (Version 4)
Quarter: 2013Q3

REPORT INFORMATION
  Report Type: Spontaneous
  Country: BR (occurrence: BR)
  Receive Date: 20130730
  Receipt Date: 20130924
  Transmission Date: 20140515
  Serious: Yes (Hospitalization, Other)
  Sender: FDA-Public Use
  Company Number: BR-PFIZER INC-2013219327

PATIENT
  Age: 78 Year
  Sex: Female
  Weight: 68 kg

DRUGS (6)
  1. OLMETEC HCT [Suspect]
     Indication: HYPERTENSION
     Dosage: [OLMESARTAN MEDOXOMIL 40 MG]/[HYDROCHLOROTHIAZIDE 25 MG] ONE TABLET, ONCE DAILY (IN THE MORNING)
     Route: 048
     Dates: start: 20121108
  2. NORVASC [Suspect]
     Indication: HYPERTENSION
     Dosage: 5 MG, 1X/DAY (AT NIGHT)
     Dates: start: 20121108
  3. AAS [Concomitant]
     Dosage: 100 MG, UNK
  4. LIPITOR [Concomitant]
     Dosage: 20 MG, UNK
  5. OMEPRAZOL [Concomitant]
     Dosage: 20 MG, UNK
  6. SUSTRATE [Concomitant]

REACTIONS (6)
  - Venous occlusion [Unknown]
  - Coronary artery disease [Unknown]
  - Bundle branch block bilateral [Unknown]
  - Chest pain [Unknown]
  - Fatigue [Unknown]
  - Exercise tolerance decreased [Unknown]
